FAERS Safety Report 20426982 (Version 1)
Quarter: 2022Q1

REPORT INFORMATION
  Report Type: Spontaneous
  Country: TH (occurrence: TH)
  Receive Date: 20220204
  Receipt Date: 20220204
  Transmission Date: 20220423
  Serious: No
  Sender: FDA-Public Use
  Company Number: TH-EXELIXIS-CABO-21046630

PATIENT
  Age: 30 Year
  Sex: Male

DRUGS (1)
  1. CABOMETYX [Suspect]
     Active Substance: CABOZANTINIB S-MALATE
     Indication: Product used for unknown indication
     Dosage: 60 MG
     Dates: start: 202107

REACTIONS (2)
  - Skin hypopigmentation [Unknown]
  - Hair colour changes [Unknown]
